FAERS Safety Report 10258210 (Version 1)
Quarter: 2014Q2

REPORT INFORMATION
  Report Type: Spontaneous
  Country: CA (occurrence: CA)
  Receive Date: 20140625
  Receipt Date: 20140625
  Transmission Date: 20141212
  Serious: Yes (Hospitalization, Other)
  Sender: FDA-Public Use
  Company Number: PHHY2014CA076751

PATIENT
  Age: 70 Year
  Sex: Female

DRUGS (13)
  1. GLEEVEC [Suspect]
     Dosage: UNK UKN, UNK
  2. ADVAIR [Concomitant]
     Dosage: UNK UKN, UNK
  3. ASA [Concomitant]
     Dosage: UNK UKN, UNK
  4. CLONAZEPAM [Concomitant]
     Dosage: UNK UKN, UNK
  5. FOLIC ACID [Concomitant]
     Dosage: UNK UKN, UNK
  6. GLICLAZIDE [Concomitant]
     Dosage: UNK UKN, UNK
  7. LANSOPRAZOLE [Concomitant]
     Dosage: UNK UKN, UNK
  8. METFORMIN [Concomitant]
     Dosage: UNK UKN, UNK
  9. ONGLYZA [Concomitant]
     Dosage: UNK UKN, UNK
  10. TELMISARTAN [Concomitant]
     Dosage: UNK UKN, UNK
  11. TIAZAC [Concomitant]
     Dosage: UNK UKN, UNK
  12. VENTOLIN [Concomitant]
     Dosage: UNK UKN, UNK
  13. EZETROL [Concomitant]
     Dosage: UNK UKN, UNK

REACTIONS (3)
  - Lung adenocarcinoma [Unknown]
  - Pulmonary mass [Unknown]
  - Malignant neoplasm progression [Unknown]
